FAERS Safety Report 4694401-4 (Version None)
Quarter: 2005Q2

REPORT INFORMATION
  Report Type: 
  Country: None (occurrence: None)
  Receive Date: 20050614
  Receipt Date: 20050315
  Transmission Date: 20051028
  Serious: No
  Sender: FDA-Public Use
  Company Number: USA050393270

PATIENT
  Age: 40 Year
  Sex: Male

DRUGS (3)
  1. CIALIS [Suspect]
     Dosage: 10 MG/ 1 AS NEEDED
     Dates: start: 20050223
  2. ATIVAN [Concomitant]
  3. MAXZIDE [Concomitant]

REACTIONS (2)
  - FLUSHING [None]
  - PHARYNGOLARYNGEAL PAIN [None]
